FAERS Safety Report 5043621-8 (Version None)
Quarter: 2006Q3

REPORT INFORMATION
  Report Type: 
  Country: None (occurrence: None)
  Receive Date: 20060706
  Receipt Date: 20060626
  Transmission Date: 20061208
  Serious: Yes (Other)
  Sender: FDA-Public Use
  Company Number: PHMT2006CA01462

PATIENT
  Age: 66 Year
  Sex: Male

DRUGS (3)
  1. ACETYLSALICYLIC ACID SRT [Concomitant]
     Dosage: 81MG QD
  2. LIPITOR [Concomitant]
  3. PMS-CARBAMAZEPINE [Suspect]
     Indication: EPILEPSY
     Dosage: 1200MG QD
     Route: 048
     Dates: start: 20050301

REACTIONS (4)
  - COORDINATION ABNORMAL [None]
  - FATIGUE [None]
  - SOMNOLENCE [None]
  - WEIGHT INCREASED [None]
